FAERS Safety Report 11090535 (Version 1)
Quarter: 2015Q2

REPORT INFORMATION
  Report Type: Spontaneous
  Country: HU (occurrence: HU)
  Receive Date: 20150505
  Receipt Date: 20150505
  Transmission Date: 20150821
  Serious: Yes (Death)
  Sender: FDA-Public Use
  Company Number: HU-SA-2015SA057531

PATIENT
  Age: 48 Year
  Sex: Female
  Weight: 80 kg

DRUGS (11)
  1. AVASTIN [Suspect]
     Active Substance: BEVACIZUMAB
     Indication: CERVIX CANCER METASTATIC
     Route: 042
     Dates: start: 20150409, end: 20150409
  2. RYTMONORM [Concomitant]
     Active Substance: PROPAFENONE
     Route: 048
  3. ONDANSETRON [Concomitant]
     Active Substance: ONDANSETRON
     Indication: PREMEDICATION
  4. CLEXANE [Suspect]
     Active Substance: ENOXAPARIN SODIUM
     Indication: PROPHYLAXIS
     Route: 058
     Dates: start: 201403
  5. CHLORPROMAZINE [Concomitant]
     Active Substance: CHLORPROMAZINE
     Indication: PREMEDICATION
     Dates: start: 20150409, end: 20150409
  6. CISPLATIN. [Concomitant]
     Active Substance: CISPLATIN
     Indication: CERVIX CANCER METASTATIC
     Dosage: 50MG/M2
     Route: 042
     Dates: start: 20150409, end: 20150409
  7. FAMOTIDINE. [Concomitant]
     Active Substance: FAMOTIDINE
     Indication: PREMEDICATION
     Dates: start: 20150408
  8. METHYLPREDNISOLONE. [Concomitant]
     Active Substance: METHYLPREDNISOLONE
     Dates: start: 20150408, end: 20150408
  9. SOLU-MEDROL [Concomitant]
     Active Substance: METHYLPREDNISOLONE SODIUM SUCCINATE
     Indication: PREMEDICATION
     Dosage: POWDER AND SOLVENT FOR SOLUTION FOR INJECTION
     Dates: start: 20150409, end: 20150409
  10. PACLITAXEL. [Concomitant]
     Active Substance: PACLITAXEL
     Indication: CERVIX CANCER METASTATIC
     Route: 042
     Dates: start: 20150409, end: 20150409
  11. PACLITAXEL. [Concomitant]
     Active Substance: PACLITAXEL
     Indication: CERVIX CANCER METASTATIC
     Route: 042
     Dates: start: 20150409, end: 20150409

REACTIONS (4)
  - Haemoptysis [Fatal]
  - Somnolence [Fatal]
  - Pulmonary haemorrhage [Fatal]
  - Asthenia [Fatal]

NARRATIVE: CASE EVENT DATE: 20150411
